FAERS Safety Report 4331521-8 (Version None)
Quarter: 2004Q2

REPORT INFORMATION
  Report Type: 
  Country: None (occurrence: None)
  Receive Date: 20040402
  Receipt Date: 20040319
  Transmission Date: 20050107
  Serious: Yes (Hospitalization)
  Sender: FDA-Public Use
  Company Number: SE-MERCK-0403SWE00028

PATIENT
  Age: 85 Year
  Sex: Female

DRUGS (6)
  1. ACETAMINOPHEN [Concomitant]
     Route: 065
  2. FOSAMAX [Suspect]
     Indication: OSTEOPOROSIS
     Route: 048
     Dates: start: 20030601, end: 20031124
  3. ASPIRIN [Suspect]
     Indication: ATRIAL FIBRILLATION
     Route: 048
     Dates: start: 20031124, end: 20031125
  4. CALCIUM CARBONATE AND CHOLECALCIFEROL [Concomitant]
     Route: 065
  5. CELECOXIB [Suspect]
     Indication: ARTHRALGIA
     Route: 048
     Dates: start: 20030425, end: 20031125
  6. DONEPEZIL HYDROCHLORIDE [Suspect]
     Indication: DEMENTIA ALZHEIMER'S TYPE
     Route: 048
     Dates: start: 20030425, end: 20031125

REACTIONS (10)
  - ATRIAL FIBRILLATION [None]
  - BLOOD CULTURE POSITIVE [None]
  - DIARRHOEA [None]
  - ESCHERICHIA INFECTION [None]
  - GASTROENTERITIS CLOSTRIDIAL [None]
  - HYPOTENSION [None]
  - ILEUS PARALYTIC [None]
  - NECROTISING OESOPHAGITIS [None]
  - OESOPHAGEAL ULCER [None]
  - VOMITING [None]
